FAERS Safety Report 24057656 (Version 2)
Quarter: 2024Q3

REPORT INFORMATION
  Report Type: Spontaneous
  Country: RS (occurrence: RS)
  Receive Date: 20240706
  Receipt Date: 20240723
  Transmission Date: 20241016
  Serious: Yes (Hospitalization, Other)
  Sender: TEVA
  Company Number: RS-TEVA-VS-3214667

PATIENT
  Sex: Female

DRUGS (3)
  1. ETOPOSIDE [Suspect]
     Active Substance: ETOPOSIDE
     Indication: Adrenocortical carcinoma
     Route: 065
  2. DOXORUBICIN [Suspect]
     Active Substance: DOXORUBICIN
     Indication: Adrenocortical carcinoma
     Route: 065
  3. MITOTANE [Suspect]
     Active Substance: MITOTANE
     Indication: Adrenocortical carcinoma
     Route: 065

REACTIONS (6)
  - Adrenocortical insufficiency acute [Recovering/Resolving]
  - Folate deficiency [Recovering/Resolving]
  - Thyroxine free decreased [Unknown]
  - Hyperlipidaemia [Recovering/Resolving]
  - Toxicity to various agents [Unknown]
  - Gamma-glutamyltransferase increased [Recovering/Resolving]
